FAERS Safety Report 6585602-9 (Version None)
Quarter: 2010Q1

REPORT INFORMATION
  Report Type: 
  Country: None (occurrence: None)
  Receive Date: 20100217
  Receipt Date: 20100205
  Transmission Date: 20100710
  Serious: Yes (Other)
  Sender: FDA-Public Use
  Company Number: GB-ELI_LILLY_AND_COMPANY-GB201001000283

PATIENT
  Sex: Male

DRUGS (6)
  1. BYETTA [Suspect]
     Indication: DIABETES MELLITUS INADEQUATE CONTROL
     Dosage: UNK, UNKNOWN
     Route: 058
     Dates: start: 20090611
  2. METFORMIN HCL [Concomitant]
     Dosage: 850 D/F, 2/D
     Route: 065
  3. GLICLAZIDE [Concomitant]
     Dosage: 80 MG, 2/D
     Route: 065
  4. ASPIRIN [Concomitant]
     Dosage: 75 MG, DAILY (1/D)
     Route: 065
  5. RAMIPRIL [Concomitant]
     Dosage: 10 MG, UNKNOWN
     Route: 065
  6. SIMVASTATIN [Concomitant]
     Dosage: 40 MG, DAILY (1/D)
     Route: 065

REACTIONS (3)
  - NAUSEA [None]
  - NEPHROLITHIASIS [None]
  - VOMITING [None]
